FAERS Safety Report 21045826 (Version 2)
Quarter: 2022Q3

REPORT INFORMATION
  Report Type: Spontaneous
  Country: CN (occurrence: None)
  Receive Date: 20220706
  Receipt Date: 20220727
  Transmission Date: 20221027
  Serious: Yes (Other)
  Sender: FDA-Public Use
  Company Number: 2022A237284

PATIENT
  Age: 43 Year
  Sex: Male

DRUGS (2)
  1. SYMBICORT [Suspect]
     Active Substance: BUDESONIDE\FORMOTEROL FUMARATE DIHYDRATE
     Indication: Asthma
     Dosage: DOSE: UNKNOWN UNKNOWN
     Route: 055
  2. RHINOCORT [Suspect]
     Active Substance: BUDESONIDE
     Route: 045

REACTIONS (8)
  - Myocardial injury [Unknown]
  - Cardiac disorder [Unknown]
  - Arrhythmia [Unknown]
  - Ventricular extrasystoles [Unknown]
  - Insomnia [Unknown]
  - Electrocardiogram ST segment abnormal [Unknown]
  - Asthma [Unknown]
  - Drug dependence [Unknown]
